FAERS Safety Report 9655836 (Version 5)
Quarter: 2015Q3

REPORT INFORMATION
  Report Type: Spontaneous
  Country: US (occurrence: US)
  Receive Date: 20131030
  Receipt Date: 20150707
  Transmission Date: 20151125
  Serious: Yes (Hospitalization, Other)
  Sender: FDA-Public Use
  Company Number: US-009507513-1010USA00586

PATIENT
  Sex: Female
  Weight: 45.35 kg

DRUGS (5)
  1. BONIVA [Suspect]
     Active Substance: IBANDRONATE SODIUM
     Indication: OSTEOPOROSIS PROPHYLAXIS
  2. BONIVA [Suspect]
     Active Substance: IBANDRONATE SODIUM
     Indication: OSTEOPENIA
     Dosage: 150 MG, UNK
     Route: 048
     Dates: start: 20060922, end: 20100225
  3. FOSAMAX [Suspect]
     Active Substance: ALENDRONATE SODIUM
     Indication: OSTEOPENIA
     Dosage: 35 MG, UNK
     Route: 048
     Dates: start: 20040705, end: 20051010
  4. FOSAMAX [Suspect]
     Active Substance: ALENDRONATE SODIUM
     Dosage: 70 MG, UNK
     Route: 048
     Dates: start: 20060102, end: 20060609
  5. FOSAMAX [Suspect]
     Active Substance: ALENDRONATE SODIUM
     Indication: OSTEOPOROSIS PROPHYLAXIS
     Dosage: 70 MG, UNK
     Route: 048
     Dates: start: 20040705, end: 20051010

REACTIONS (22)
  - Low turnover osteopathy [Unknown]
  - Impaired healing [Recovered/Resolved]
  - Bursitis [Unknown]
  - Depression [Unknown]
  - Anaemia [Unknown]
  - Oedema peripheral [Unknown]
  - Back pain [Unknown]
  - Medical device removal [Unknown]
  - Femur fracture [Recovered/Resolved]
  - Anger [Unknown]
  - Medical device removal [Unknown]
  - Anxiety [Unknown]
  - Self esteem decreased [Unknown]
  - Tendon disorder [Unknown]
  - Scar pain [Unknown]
  - Femur fracture [Unknown]
  - Anaemia postoperative [Unknown]
  - Hypotension [Not Recovered/Not Resolved]
  - Arthralgia [Unknown]
  - Intramedullary rod insertion [Unknown]
  - Avulsion fracture [Unknown]
  - Fibroma [Unknown]

NARRATIVE: CASE EVENT DATE: 200904
